FAERS Safety Report 12580559 (Version 1)
Quarter: 2016Q3

REPORT INFORMATION
  Report Type: Spontaneous
  Country: US (occurrence: US)
  Receive Date: 20160721
  Receipt Date: 20160721
  Transmission Date: 20161109
  Serious: No
  Sender: FDA-Public Use
  Company Number: US-SEPTODONT-201603390

PATIENT
  Age: 87 Year
  Sex: Female

DRUGS (1)
  1. LIDOCAINE OINTMENT USP, 5% (FLAVORED) [Suspect]
     Active Substance: LIDOCAINE
     Indication: LOCAL ANAESTHESIA
     Dosage: UNKNOWN
     Route: 061

REACTIONS (4)
  - Off label use [None]
  - Vision blurred [Recovered/Resolved]
  - Exposure via eye contact [Recovered/Resolved]
  - Accidental exposure to product [Recovered/Resolved]
